FAERS Safety Report 7431937-7 (Version None)
Quarter: 2011Q2

REPORT INFORMATION
  Report Type: 
  Country: None (occurrence: None)
  Receive Date: 20110422
  Receipt Date: 20101015
  Transmission Date: 20111010
  Serious: Yes (Other)
  Sender: FDA-Public Use
  Company Number: US-BRISTOL-MYERS SQUIBB COMPANY-15336928

PATIENT
  Age: 17 Month
  Sex: Male

DRUGS (1)
  1. CARBOPLATIN [Suspect]

REACTIONS (1)
  - PLATELET COUNT DECREASED [None]
